FAERS Safety Report 4433598-8 (Version None)
Quarter: 2004Q3

REPORT INFORMATION
  Report Type: 
  Country: None (occurrence: None)
  Receive Date: 20040824
  Receipt Date: 20040812
  Transmission Date: 20050211
  Serious: Yes (Hospitalization)
  Sender: FDA-Public Use
  Company Number: S04-USA-05506-01

PATIENT
  Age: 78 Year
  Sex: Female

DRUGS (1)
  1. THYROID TAB [Suspect]
     Indication: HYPOTHYROIDISM
     Dosage: 60 MG QD PO
     Route: 048
     Dates: start: 20030801, end: 20040812

REACTIONS (2)
  - ARRHYTHMIA [None]
  - DYSPNOEA [None]
